FAERS Safety Report 20135864 (Version 1)
Quarter: 2021Q4

REPORT INFORMATION
  Report Type: Spontaneous
  Country: US (occurrence: US)
  Receive Date: 20211201
  Receipt Date: 20211201
  Transmission Date: 20220303
  Serious: Yes (Death, Hospitalization)
  Sender: FDA-Public Use
  Company Number: US-JNJFOC-20211146514

PATIENT

DRUGS (1)
  1. ACETAMINOPHEN [Suspect]
     Active Substance: ACETAMINOPHEN
     Indication: Product used for unknown indication
     Dosage: INGESTION WAS RECOGNIZED AS A COMMON ROUTE OF EXPOSURE IN THE STUDY POPULATION (N = 38,777, 99.4%) A
     Route: 065

REACTIONS (41)
  - Coma [Fatal]
  - Rhabdomyolysis [Fatal]
  - Hypothermia [Fatal]
  - Hyperthermia [Fatal]
  - Somnolence [Fatal]
  - Agitation [Fatal]
  - Diarrhoea [Fatal]
  - Alkalosis [Fatal]
  - Decreased appetite [Fatal]
  - Dizziness [Fatal]
  - Seizure [Fatal]
  - Confusional state [Fatal]
  - Tremor [Fatal]
  - Tachycardia [Fatal]
  - Arrhythmia [Fatal]
  - Conduction disorder [Fatal]
  - Chromaturia [Fatal]
  - Muscular weakness [Fatal]
  - Hyperglycaemia [Fatal]
  - Dehydration [Fatal]
  - Oedema [Fatal]
  - Hyperventilation [Fatal]
  - Mydriasis [Fatal]
  - Anion gap increased [Fatal]
  - Electrolyte imbalance [Fatal]
  - Pancytopenia [Fatal]
  - Abdominal pain [Fatal]
  - Haematemesis [Fatal]
  - Coagulopathy [Fatal]
  - Hypotension [Fatal]
  - Pupil fixed [Fatal]
  - Acidosis [Fatal]
  - Blood bilirubin increased [Fatal]
  - Renal failure [Fatal]
  - Intentional overdose [Fatal]
  - Accidental overdose [Fatal]
  - Vomiting [Fatal]
  - Nausea [Fatal]
  - International normalised ratio increased [Fatal]
  - Prothrombin time prolonged [Fatal]
  - Transaminases increased [Fatal]
